FAERS Safety Report 7124895-6 (Version None)
Quarter: 2010Q4

REPORT INFORMATION
  Report Type: 
  Country: None (occurrence: None)
  Receive Date: 20101129
  Receipt Date: 20101119
  Transmission Date: 20110411
  Serious: No
  Sender: FDA-Public Use
  Company Number: PHFR2010GB05319

PATIENT
  Sex: Male
  Weight: 95.4 kg

DRUGS (2)
  1. TEGRETOL [Suspect]
     Indication: EPILEPSY
     Dosage: 200 MG, BID
     Route: 048
  2. EPILIM [Concomitant]
     Indication: EPILEPSY
     Dosage: UNK
     Route: 048
     Dates: start: 19990101

REACTIONS (2)
  - CONVULSION [None]
  - PSYCHOMOTOR HYPERACTIVITY [None]
